FAERS Safety Report 8316995-X (Version None)
Quarter: 2012Q2

REPORT INFORMATION
  Report Type: 
  Country: None (occurrence: None)
  Receive Date: 20120425
  Receipt Date: 20120412
  Transmission Date: 20120825
  Serious: Yes (Hospitalization)
  Sender: FDA-Public Use
  Company Number: DSU-2012-02953

PATIENT
  Age: 77 Year
  Sex: Female
  Weight: 59.86 kg

DRUGS (13)
  1. VITAMIN E (TOCOPHEROL) (TOCOPHEROL) [Concomitant]
  2. ERGOCALCICFEROL (ERGOCALCIFEROL) (ERGOCALCIFEROL) [Concomitant]
  3. MULTIVITAMIN (ERGOCALCIFEROL, ASCORBIC ACID, FOLIC ACID. THIAMINE HYDR [Concomitant]
  4. LIPITOR [Concomitant]
  5. NAMENDA [Concomitant]
  6. BLINDED BAPINEUZUMAB [Suspect]
     Indication: DEMENTIA ALZHEIMER'S TYPE
     Dosage: SEE IMAGE
     Route: 042
     Dates: start: 20101103, end: 20101103
  7. BLINDED BAPINEUZUMAB [Suspect]
     Indication: DEMENTIA ALZHEIMER'S TYPE
     Dosage: SEE IMAGE
     Route: 042
     Dates: start: 20110208, end: 20110208
  8. BLINDED BAPINEUZUMAB [Suspect]
     Indication: DEMENTIA ALZHEIMER'S TYPE
     Dosage: SEE IMAGE
     Route: 042
     Dates: start: 20100504, end: 20100504
  9. BLINDED BAPINEUZUMAB [Suspect]
     Indication: DEMENTIA ALZHEIMER'S TYPE
     Dosage: SEE IMAGE
     Route: 042
     Dates: start: 20100729, end: 20100729
  10. ARIMIDEX [Concomitant]
  11. BENICAR [Suspect]
     Indication: PRODUCT USED FOR UNKNOWN INDICATION
     Dosage: 20 MG (20 MG, Q.D), PER ORAL
     Route: 048
     Dates: start: 20050101
  12. ARICEPT [Concomitant]
  13. IBUPROFEN TABLETS [Concomitant]

REACTIONS (4)
  - FALL [None]
  - TREATMENT NONCOMPLIANCE [None]
  - HYPOTENSION [None]
  - INCORRECT DOSE ADMINISTERED [None]
